FAERS Safety Report 9790348 (Version 5)
Quarter: 2014Q2

REPORT INFORMATION
  Report Type: Report from Study
  Country: JP (occurrence: JP)
  Receive Date: 20131231
  Receipt Date: 20140421
  Transmission Date: 20141212
  Serious: Yes (Hospitalization)
  Sender: FDA-Public Use
  Company Number: JP-ABBVIE-13P-087-1177191-00

PATIENT
  Age: 17 Year
  Sex: Male

DRUGS (10)
  1. HUMIRA [Suspect]
     Indication: JUVENILE IDIOPATHIC ARTHRITIS
     Route: 058
     Dates: start: 20130325, end: 20130422
  2. HUMIRA [Suspect]
     Dates: start: 20130507, end: 20130729
  3. METHOTREXATE [Concomitant]
     Indication: JUVENILE IDIOPATHIC ARTHRITIS
     Route: 048
     Dates: start: 20060117
  4. PREDNISOLONE [Concomitant]
     Indication: JUVENILE IDIOPATHIC ARTHRITIS
     Route: 048
     Dates: start: 20051211
  5. NAPROXEN [Concomitant]
     Indication: JUVENILE IDIOPATHIC ARTHRITIS
     Route: 048
     Dates: start: 20101105
  6. TRIAMCINOLONE ACETONIDE [Concomitant]
     Indication: PRODUCT USED FOR UNKNOWN INDICATION
     Route: 061
     Dates: start: 20130729, end: 20131024
  7. HYDROCORTISONE BUTYRATE [Concomitant]
     Indication: MILIARIA
     Dates: start: 20130729, end: 20130805
  8. FEXOFENADINE HYDROCHLORIDE [Concomitant]
     Indication: PRODUCT USED FOR UNKNOWN INDICATION
     Route: 048
  9. BROTIZOLAM [Concomitant]
     Indication: PRODUCT USED FOR UNKNOWN INDICATION
     Dosage: DOSE UNKNOWN
     Route: 048
  10. ALLOPURINOL [Concomitant]
     Indication: PRODUCT USED FOR UNKNOWN INDICATION
     Route: 048

REACTIONS (17)
  - Stomatitis [Recovered/Resolved]
  - Decreased appetite [Recovered/Resolved]
  - Miliaria [Recovered/Resolved]
  - Bite [Unknown]
  - Weight decreased [Unknown]
  - Blood test abnormal [Unknown]
  - Decreased appetite [Unknown]
  - Eye luxation [Unknown]
  - Weight decreased [Unknown]
  - Hypophagia [Unknown]
  - Gastrointestinal disorder [Unknown]
  - C-reactive protein increased [Unknown]
  - Infection [Unknown]
  - Arthralgia [Unknown]
  - Folliculitis [Unknown]
  - Oral pain [Unknown]
  - Oral pain [Unknown]
